FAERS Safety Report 8854848 (Version 1)
Quarter: 2012Q4

REPORT INFORMATION
  Report Type: 
  Country: US (occurrence: US)
  Receive Date: 20121023
  Receipt Date: 20121023
  Transmission Date: 20130627
  Serious: No
  Sender: FDA-Public Use
  Company Number: US-PFIZER INC-2012263653

PATIENT

DRUGS (2)
  1. PRISTIQ [Suspect]
     Indication: ANXIETY
     Dosage: 50 mg a day
  2. PRISTIQ [Suspect]
     Dosage: 25 mg a day

REACTIONS (2)
  - Withdrawal syndrome [Unknown]
  - Off label use [Unknown]
